FAERS Safety Report 8921238 (Version 9)
Quarter: 2014Q1

REPORT INFORMATION
  Report Type: Report from Study
  Country: BG (occurrence: BG)
  Receive Date: 20121121
  Receipt Date: 20140227
  Transmission Date: 20141002
  Serious: Yes (Hospitalization)
  Sender: FDA-Public Use
  Company Number: BG-GLAXOSMITHKLINE-Z0017708A

PATIENT
  Age: 53 Year
  Sex: Male
  Weight: 73 kg

DRUGS (2)
  1. OFATUMUMAB [Suspect]
     Indication: CHRONIC LYMPHOCYTIC LEUKAEMIA REFRACTORY
     Route: 042
     Dates: start: 20120328, end: 20121025
  2. RANITIDIN [Concomitant]
     Indication: ABDOMINAL PAIN UPPER
     Dosage: 150MG PER DAY
     Route: 048
     Dates: start: 201207

REACTIONS (3)
  - Chorea [Not Recovered/Not Resolved]
  - Chorioretinal atrophy [Not Recovered/Not Resolved]
  - Meningitis aseptic [Recovered/Resolved with Sequelae]
